FAERS Safety Report 4985064-9 (Version None)
Quarter: 2006Q2

REPORT INFORMATION
  Report Type: 
  Country: None (occurrence: None)
  Receive Date: 20060419
  Receipt Date: 20060409
  Transmission Date: 20061013
  Serious: Yes (Death)
  Sender: FDA-Public Use
  Company Number: 2006-140942-NL

PATIENT
  Age: 56 Year
  Sex: Female

DRUGS (3)
  1. DANAPAROID [Suspect]
     Indication: HEPARIN-INDUCED THROMBOCYTOPENIA
  2. DANAPAROID [Suspect]
     Indication: THROMBOSIS
  3. HEPARIN [Concomitant]

REACTIONS (4)
  - DISEASE RECURRENCE [None]
  - LACUNAR INFARCTION [None]
  - PULMONARY EMBOLISM [None]
  - THROMBOSIS [None]
